FAERS Safety Report 21608317 (Version 1)
Quarter: 2022Q4

REPORT INFORMATION
  Report Type: Spontaneous
  Country: KR (occurrence: KR)
  Receive Date: 20221117
  Receipt Date: 20221117
  Transmission Date: 20230112
  Serious: Yes (Other)
  Sender: FDA-Public Use
  Company Number: KR-MYLANLABS-2022M1126334

PATIENT
  Age: 74 Year
  Sex: Female

DRUGS (6)
  1. LYRICA [Suspect]
     Active Substance: PREGABALIN
     Indication: Herpes zoster
     Dosage: 1 DOSAGE FORM, QD
     Route: 065
     Dates: start: 20200720
  2. LYRICA [Suspect]
     Active Substance: PREGABALIN
     Indication: Nervous system disorder
  3. MAGNESIUM HYDROXIDE [Suspect]
     Active Substance: MAGNESIUM HYDROXIDE
     Indication: Herpes zoster
     Dosage: 1 DOSAGE FORM, QD
     Route: 065
     Dates: start: 20200720
  4. MAGNESIUM HYDROXIDE [Suspect]
     Active Substance: MAGNESIUM HYDROXIDE
     Indication: Nervous system disorder
  5. TRAMADOL HYDROCHLORIDE AND ACETAMINOPHEN [Suspect]
     Active Substance: ACETAMINOPHEN\TRAMADOL HYDROCHLORIDE
     Indication: Herpes zoster
     Dosage: 1 DOSAGE FORM, QD
     Route: 065
     Dates: start: 20200720
  6. TRAMADOL HYDROCHLORIDE AND ACETAMINOPHEN [Suspect]
     Active Substance: ACETAMINOPHEN\TRAMADOL HYDROCHLORIDE
     Indication: Nervous system disorder

REACTIONS (2)
  - Haematochezia [Recovering/Resolving]
  - Off label use [Unknown]

NARRATIVE: CASE EVENT DATE: 20200720
